FAERS Safety Report 5162738-0 (Version None)
Quarter: 2006Q4

REPORT INFORMATION
  Report Type: 
  Country: None (occurrence: None)
  Receive Date: 20061121
  Receipt Date: 20061102
  Transmission Date: 20070319
  Serious: Yes (Death)
  Sender: FDA-Public Use
  Company Number: 061107-000098

PATIENT
  Age: 33 Year
  Sex: 0

DRUGS (3)
  1. NEOPROFEN [Suspect]
     Indication: INTENTIONAL DRUG MISUSE
     Dosage: INGESTION
  2. ACETAMINOPHEN [Suspect]
     Indication: INTENTIONAL DRUG MISUSE
     Dosage: INGESTION
  3. HYDROCODONE (HYDROCODONE) [Suspect]
     Indication: INTENTIONAL DRUG MISUSE
     Dosage: INGESTION

REACTIONS (1)
  - INTENTIONAL DRUG MISUSE [None]
